FAERS Safety Report 6727112-1 (Version None)
Quarter: 2010Q2

REPORT INFORMATION
  Report Type: 
  Country: None (occurrence: None)
  Receive Date: 20100517
  Receipt Date: 20100512
  Transmission Date: 20101027
  Serious: Yes (Disabling, Other)
  Sender: FDA-Public Use
  Company Number: US-BAYER-200942265NA

PATIENT
  Age: 45 Year
  Sex: Female

DRUGS (3)
  1. BETASERON [Suspect]
     Indication: MULTIPLE SCLEROSIS
     Dosage: TOTAL DAILY DOSE: 8 MIU
     Route: 058
     Dates: start: 20090801
  2. BETASERON [Suspect]
     Dosage: TOTAL DAILY DOSE: 8 MIU
     Route: 058
  3. BETASERON [Suspect]
     Dosage: AS USED: 8 MIU
     Route: 058
     Dates: start: 20100401

REACTIONS (9)
  - ANXIETY [None]
  - BLINDNESS [None]
  - DEPRESSION [None]
  - DIPLOPIA [None]
  - HEADACHE [None]
  - INJECTION SITE PAIN [None]
  - STRESS [None]
  - SUICIDAL IDEATION [None]
  - URTICARIA [None]
